FAERS Safety Report 25555281 (Version 1)
Quarter: 2025Q3

REPORT INFORMATION
  Report Type: Spontaneous
  Country: US (occurrence: US)
  Receive Date: 20250715
  Receipt Date: 20250715
  Transmission Date: 20251020
  Serious: No
  Sender: TEVA
  Company Number: US-TEVA-VS-3350089

PATIENT
  Age: 65 Year
  Sex: Female

DRUGS (2)
  1. AJOVY [Suspect]
     Active Substance: FREMANEZUMAB-VFRM
     Indication: Migraine
     Dosage: 225/1.5MG/ML, DRUG STARTED DATE: USING FOR ALMOST 3 YEARS
     Route: 065
     Dates: start: 2022
  2. UBRELVY [Concomitant]
     Active Substance: UBROGEPANT
     Indication: Migraine
     Route: 048

REACTIONS (8)
  - Migraine [Unknown]
  - Malaise [Unknown]
  - Feeling abnormal [Unknown]
  - Injection site pain [Recovered/Resolved]
  - Sleep disorder [Unknown]
  - Product use issue [Unknown]
  - Nausea [Unknown]
  - Injection site haemorrhage [Unknown]

NARRATIVE: CASE EVENT DATE: 20250701
